FAERS Safety Report 5883878-4 (Version None)
Quarter: 2008Q3

REPORT INFORMATION
  Report Type: 
  Country: None (occurrence: None)
  Receive Date: 20080915
  Receipt Date: 20080904
  Transmission Date: 20090109
  Serious: Yes (Hospitalization)
  Sender: FDA-Public Use
  Company Number: A0747384A

PATIENT
  Age: 57 Year
  Sex: Female
  Weight: 77.3 kg

DRUGS (2)
  1. AVANDIA [Suspect]
     Dosage: 4MG PER DAY
     Route: 048
     Dates: start: 20030331, end: 20070501
  2. GLUCOTROL [Concomitant]

REACTIONS (6)
  - BRAIN INJURY [None]
  - CARDIOVASCULAR DISORDER [None]
  - CEREBROVASCULAR ACCIDENT [None]
  - CHEST PAIN [None]
  - EYE DISORDER [None]
  - PALPITATIONS [None]
